FAERS Safety Report 13167044 (Version 1)
Quarter: 2017Q1

REPORT INFORMATION
  Report Type: Spontaneous
  Country: US (occurrence: US)
  Receive Date: 20170130
  Receipt Date: 20170130
  Transmission Date: 20170428
  Serious: No
  Sender: FDA-Public Use
  Company Number: None

PATIENT
  Age: 77 Year
  Sex: Female
  Weight: 78.75 kg

DRUGS (12)
  1. RECLAST [Suspect]
     Active Substance: ZOLEDRONIC ACID
     Indication: OSTEOPOROSIS
     Dosage: INTRAVENOUS ONCE PER YEAR?
     Route: 042
  2. METFORMIN [Concomitant]
     Active Substance: METFORMIN HYDROCHLORIDE
  3. LISINOPRIL. [Concomitant]
     Active Substance: LISINOPRIL
  4. IRON [Concomitant]
     Active Substance: IRON
  5. ALBUTEROL. [Concomitant]
     Active Substance: ALBUTEROL
  6. VITAMIN D [Concomitant]
     Active Substance: CHOLECALCIFEROL
  7. GLIPIZIDE. [Concomitant]
     Active Substance: GLIPIZIDE
  8. ANASTRAZOLE [Concomitant]
     Active Substance: ANASTROZOLE
  9. MONTELUKAST [Concomitant]
     Active Substance: MONTELUKAST SODIUM
  10. FISH OIL [Concomitant]
     Active Substance: FISH OIL
  11. SYMBICORT [Concomitant]
     Active Substance: BUDESONIDE\FORMOTEROL FUMARATE DIHYDRATE
  12. SIMVASTATIN. [Concomitant]
     Active Substance: SIMVASTATIN

REACTIONS (6)
  - Fatigue [None]
  - Influenza like illness [None]
  - Myalgia [None]
  - Headache [None]
  - Nausea [None]
  - Chills [None]

NARRATIVE: CASE EVENT DATE: 20170128
